FAERS Safety Report 8390789-1 (Version None)
Quarter: 2012Q2

REPORT INFORMATION
  Report Type: 
  Country: None (occurrence: None)
  Receive Date: 20120529
  Receipt Date: 20120523
  Transmission Date: 20120825
  Serious: Yes (Death, Other)
  Sender: FDA-Public Use
  Company Number: US-PFIZER INC-2012104959

PATIENT
  Sex: Female

DRUGS (10)
  1. ONDANSETRON [Concomitant]
  2. XALKORI [Suspect]
     Dosage: 250 MG, 2X/DAY
     Route: 048
     Dates: start: 20110801
  3. HYDROCODONE [Concomitant]
  4. TRAMADOL [Concomitant]
  5. SENNA [Concomitant]
  6. OMEPRAZOLE [Concomitant]
     Dosage: UNK
  7. DILTIAZEM [Concomitant]
  8. TEMAZEPAM [Concomitant]
  9. FUROSEMIDE [Concomitant]
  10. COLACE [Concomitant]

REACTIONS (2)
  - PULMONARY EMBOLISM [None]
  - CARDIO-RESPIRATORY ARREST [None]
